FAERS Safety Report 6974604-6 (Version None)
Quarter: 2010Q3

REPORT INFORMATION
  Report Type: 
  Country: None (occurrence: None)
  Receive Date: 20100909
  Receipt Date: 20100909
  Transmission Date: 20110219
  Serious: Yes (Other)
  Sender: FDA-Public Use
  Company Number: None

PATIENT
  Age: 46 Year
  Sex: Male
  Weight: 68.0396 kg

DRUGS (1)
  1. SIMVASTATIN [Suspect]
     Indication: BLOOD CHOLESTEROL INCREASED
     Dosage: 1 PILL DAILY PO
     Route: 048
     Dates: start: 20100831, end: 20100902

REACTIONS (5)
  - ANXIETY [None]
  - DIZZINESS [None]
  - DRUG HYPERSENSITIVITY [None]
  - PAIN [None]
  - PARAESTHESIA [None]
